FAERS Safety Report 13175311 (Version 2)
Quarter: 2017Q1

REPORT INFORMATION
  Report Type: Spontaneous
  Country: PL (occurrence: PL)
  Receive Date: 20170201
  Receipt Date: 20170227
  Transmission Date: 20170428
  Serious: Yes (Hospitalization)
  Sender: FDA-Public Use
  Company Number: PL-TEVA-735080ISR

PATIENT
  Age: 54 Year
  Sex: Female
  Weight: 59 kg

DRUGS (5)
  1. ASPIRIN. [Suspect]
     Active Substance: ASPIRIN
     Route: 048
  2. TRAMAL [Concomitant]
     Active Substance: TRAMADOL
     Dosage: 300MG
     Route: 048
  3. DIKLOFENAK [Suspect]
     Active Substance: DICLOFENAC SODIUM
     Route: 048
  4. KETONAL [Suspect]
     Active Substance: KETOPROFEN
     Route: 048
  5. IBUPROM [Suspect]
     Active Substance: IBUPROFEN
     Route: 048

REACTIONS (7)
  - Overdose [Recovered/Resolved]
  - Obstruction gastric [Recovered/Resolved]
  - Suicide attempt [Recovered/Resolved]
  - Toxicity to various agents [Recovered/Resolved]
  - Gastric ulcer [Recovered/Resolved]
  - Gastric haemorrhage [Recovered/Resolved]
  - Gastrointestinal necrosis [Recovered/Resolved]
